FAERS Safety Report 5286031-0 (Version None)
Quarter: 2007Q1

REPORT INFORMATION
  Report Type: 
  Country: None (occurrence: None)
  Receive Date: 20070329
  Receipt Date: 20070315
  Transmission Date: 20070707
  Serious: Yes (Disabling)
  Sender: FDA-Public Use
  Company Number: US-1162303

PATIENT
  Age: 41 Year
  Sex: Female

DRUGS (3)
  1. VIGAMOX [Suspect]
     Indication: KERATITIS BACTERIAL
     Dosage: 1 GTT OS Q 2 HOURS X 4 WEEKS OPHTHALMIC
     Route: 047
  2. FML FORTE [Concomitant]
  3. ERYTHROMYCIN [Concomitant]

REACTIONS (9)
  - CONJUNCTIVAL HYPERAEMIA [None]
  - CORNEAL DISORDER [None]
  - CORNEAL OEDEMA [None]
  - CORNEAL SCAR [None]
  - DRUG TOXICITY [None]
  - HYPOPYON [None]
  - OCULAR TOXICITY [None]
  - ULCERATIVE KERATITIS [None]
  - VISUAL ACUITY REDUCED [None]
